FAERS Safety Report 24365089 (Version 1)
Quarter: 2024Q3

REPORT INFORMATION
  Report Type: Spontaneous
  Country: US (occurrence: US)
  Receive Date: 20240926
  Receipt Date: 20240926
  Transmission Date: 20241016
  Serious: Yes (Other)
  Sender: DR REDDYS
  Company Number: US-DRL-USA-SPO/USA/24/0013998

PATIENT
  Age: 29 Year
  Sex: Male

DRUGS (8)
  1. RISPERIDONE [Suspect]
     Active Substance: RISPERIDONE
     Indication: Autism spectrum disorder
  2. RISPERIDONE [Suspect]
     Active Substance: RISPERIDONE
     Dosage: NIGHTLY
  3. OLANZAPINE [Suspect]
     Active Substance: OLANZAPINE
     Indication: Autism spectrum disorder
  4. VALPROATE [Suspect]
     Active Substance: VALPROIC ACID
     Indication: Autism spectrum disorder
  5. ARIPIPRAZOLE [Concomitant]
     Active Substance: ARIPIPRAZOLE
     Indication: Autism spectrum disorder
  6. LORAZEPAM [Concomitant]
     Active Substance: LORAZEPAM
     Indication: Autism spectrum disorder
  7. CLONAZEPAM [Concomitant]
     Active Substance: CLONAZEPAM
     Indication: Autism spectrum disorder
  8. NALTREXONE [Concomitant]
     Active Substance: NALTREXONE
     Indication: Autism spectrum disorder

REACTIONS (9)
  - Type 2 diabetes mellitus [Unknown]
  - Akathisia [Recovered/Resolved]
  - Salivary hypersecretion [Recovered/Resolved]
  - Nausea [Recovered/Resolved]
  - Confusional state [Recovered/Resolved]
  - Hyperammonaemia [Recovered/Resolved]
  - Drug intolerance [Unknown]
  - Emotional poverty [Recovered/Resolved]
  - Product use in unapproved indication [Unknown]
